FAERS Safety Report 18061721 (Version 1)
Quarter: 2020Q3

REPORT INFORMATION
  Report Type: Spontaneous
  Country: AR (occurrence: AR)
  Receive Date: 20200723
  Receipt Date: 20200723
  Transmission Date: 20201103
  Serious: Yes (Other)
  Sender: FDA-Public Use
  Company Number: AR-PFIZER INC-2020280318

PATIENT
  Age: 57 Year
  Sex: Female

DRUGS (1)
  1. SOMAVERT [Suspect]
     Active Substance: PEGVISOMANT
     Indication: ACROMEGALY
     Dosage: 10 MG, 7 TIMES A WEEK
     Dates: start: 20191204

REACTIONS (2)
  - Platelet count decreased [Unknown]
  - Dengue fever [Unknown]

NARRATIVE: CASE EVENT DATE: 202004
